FAERS Safety Report 19518569 (Version 1)
Quarter: 2021Q3

REPORT INFORMATION
  Report Type: Spontaneous
  Country: US (occurrence: US)
  Receive Date: 20210712
  Receipt Date: 20210712
  Transmission Date: 20211014
  Serious: No
  Sender: FDA-Public Use
  Company Number: US-ALLERGAN-2113798US

PATIENT
  Age: 19 Year
  Sex: Female

DRUGS (9)
  1. UBRELVY [Suspect]
     Active Substance: UBROGEPANT
     Indication: POST-TRAUMATIC HEADACHE
     Dosage: 1?2 TABLETS BY MOUTH AT ONSET OF PAIN
     Route: 048
  2. GABAPENTIN. [Concomitant]
     Active Substance: GABAPENTIN
  3. SUMATRIPTAN. [Concomitant]
     Active Substance: SUMATRIPTAN
  4. MAGNESIUM [Concomitant]
     Active Substance: MAGNESIUM
  5. PHENERGAN [Concomitant]
     Active Substance: PROMETHAZINE HYDROCHLORIDE
  6. ONDANSETRON [Concomitant]
     Active Substance: ONDANSETRON
  7. CYMBALTA [Concomitant]
     Active Substance: DULOXETINE HYDROCHLORIDE
  8. VITAMIN B?6 [Concomitant]
     Active Substance: PYRIDOXINE
  9. BENAZEPRIL [Concomitant]
     Active Substance: BENAZEPRIL HYDROCHLORIDE

REACTIONS (2)
  - Somnolence [Unknown]
  - Off label use [Unknown]
